FAERS Safety Report 4602903-1 (Version None)
Quarter: 2005Q1

REPORT INFORMATION
  Report Type: 
  Country: None (occurrence: None)
  Receive Date: 20050309
  Receipt Date: 20050214
  Transmission Date: 20050727
  Serious: Yes (Other)
  Sender: FDA-Public Use
  Company Number: SE-GLAXOSMITHKLINE-B0373985A

PATIENT
  Age: 38 Year
  Sex: Male

DRUGS (1)
  1. ZYBAN [Suspect]
     Dates: start: 20050101

REACTIONS (8)
  - ANXIETY [None]
  - DYSPNOEA [None]
  - HALLUCINATION [None]
  - INCOHERENT [None]
  - INSOMNIA [None]
  - PYREXIA [None]
  - SENSORY DISTURBANCE [None]
  - TONSILLITIS [None]
